FAERS Safety Report 7709738-1 (Version None)
Quarter: 2011Q3

REPORT INFORMATION
  Report Type: 
  Country: None (occurrence: None)
  Receive Date: 20110825
  Receipt Date: 20110812
  Transmission Date: 20111222
  Serious: Yes (Other)
  Sender: FDA-Public Use
  Company Number: US-JNJFOC-20110809252

PATIENT
  Age: 52 Year
  Sex: Female
  Weight: 65.77 kg

DRUGS (2)
  1. SIMAVASTATIN [Concomitant]
     Indication: BLOOD CHOLESTEROL INCREASED
     Route: 065
  2. LISTERINE TOTAL CARE PLUS WHITENING [Suspect]
     Indication: DENTAL CARE
     Dosage: 1 TSP
     Route: 048
     Dates: end: 20110808

REACTIONS (4)
  - TONGUE DISCOLOURATION [None]
  - APPLICATION SITE BURN [None]
  - FUNGAL INFECTION [None]
  - DYSPHAGIA [None]
